FAERS Safety Report 21392231 (Version 1)
Quarter: 2022Q3

REPORT INFORMATION
  Report Type: Spontaneous
  Country: None (occurrence: XG)
  Receive Date: 20220929
  Receipt Date: 20220929
  Transmission Date: 20221026
  Serious: Yes (Life-Threatening, Hospitalization)
  Sender: FDA-Public Use
  Company Number: XG-Nostrum Laboratories, Inc.-2133298

PATIENT
  Age: 23 Year
  Sex: Female

DRUGS (1)
  1. CARBAMAZEPINE [Suspect]
     Active Substance: CARBAMAZEPINE
     Indication: Anxiety disorder
     Route: 048

REACTIONS (4)
  - Toxic epidermal necrolysis [Recovered/Resolved]
  - Septic shock [Recovered/Resolved]
  - Dehydration [Recovered/Resolved]
  - Eye disorder [Recovered/Resolved]
